FAERS Safety Report 15725545 (Version 2)
Quarter: 2019Q1

REPORT INFORMATION
  Report Type: Spontaneous
  Country: GB (occurrence: GB)
  Receive Date: 20181215
  Receipt Date: 20190131
  Transmission Date: 20190417
  Serious: Yes (Death, Life-Threatening, Hospitalization)
  Sender: FDA-Public Use
  Company Number: GB-ACCORD-095981

PATIENT
  Age: 81 Year
  Sex: Female
  Weight: 39 kg

DRUGS (7)
  1. AMITRIPTYLINE [Suspect]
     Active Substance: AMITRIPTYLINE
     Indication: PRODUCT USED FOR UNKNOWN INDICATION
     Route: 048
  2. TRAMADOL/TRAMADOL HYDROCHLORIDE [Suspect]
     Active Substance: TRAMADOL HYDROCHLORIDE
     Indication: PRODUCT USED FOR UNKNOWN INDICATION
     Dates: start: 2009, end: 20120211
  3. LISINOPRIL. [Suspect]
     Active Substance: LISINOPRIL
     Indication: PRODUCT USED FOR UNKNOWN INDICATION
     Route: 048
  4. FUROSEMIDE. [Suspect]
     Active Substance: FUROSEMIDE
     Indication: PRODUCT USED FOR UNKNOWN INDICATION
     Route: 048
  5. SIMVASTATIN. [Suspect]
     Active Substance: SIMVASTATIN
     Indication: PRODUCT USED FOR UNKNOWN INDICATION
     Route: 048
  6. CALCIUM GLUCONATE/MAGNESIUM CARBONATE/POTASSIUM CHLORIDE/SODIUM CHLORIDE [Suspect]
     Active Substance: CALCIUM GLUCONATE\MAGNESIUM CARBONATE\POTASSIUM CHLORIDE\SODIUM CHLORIDE
     Indication: PRODUCT USED FOR UNKNOWN INDICATION
     Route: 042
  7. FELODIPINE. [Suspect]
     Active Substance: FELODIPINE
     Indication: PRODUCT USED FOR UNKNOWN INDICATION

REACTIONS (13)
  - Hypocalcaemia [Not Recovered/Not Resolved]
  - Hypercalcaemia [Not Recovered/Not Resolved]
  - Dyspnoea [Not Recovered/Not Resolved]
  - Dizziness [Not Recovered/Not Resolved]
  - Seizure [Fatal]
  - Accidental overdose [Unknown]
  - Pyrexia [Not Recovered/Not Resolved]
  - Pain in extremity [Not Recovered/Not Resolved]
  - Vomiting [Not Recovered/Not Resolved]
  - Oedema [Not Recovered/Not Resolved]
  - Chest pain [Not Recovered/Not Resolved]
  - Anaemia [Not Recovered/Not Resolved]
  - Blood alkaline phosphatase increased [Not Recovered/Not Resolved]

NARRATIVE: CASE EVENT DATE: 2009
